FAERS Safety Report 20021156 (Version 1)
Quarter: 2021Q4

REPORT INFORMATION
  Report Type: Spontaneous
  Country: ES (occurrence: ES)
  Receive Date: 20211101
  Receipt Date: 20211101
  Transmission Date: 20220304
  Serious: Yes (Other)
  Sender: FDA-Public Use
  Company Number: None

PATIENT
  Age: 64 Year
  Sex: Male

DRUGS (4)
  1. DOTAREM [Suspect]
     Active Substance: GADOTERATE MEGLUMINE
     Indication: Product used for unknown indication
     Route: 042
     Dates: start: 20210219, end: 20210219
  2. SULPIRIDA KERN PHARMA [Concomitant]
     Indication: Product used for unknown indication
     Route: 048
     Dates: start: 20210113
  3. PARACETAMOL QUALIGEN [Concomitant]
     Indication: Product used for unknown indication
     Route: 048
     Dates: start: 20200330
  4. OMEPRAZOLE MAGNESIUM [Concomitant]
     Active Substance: OMEPRAZOLE MAGNESIUM
     Indication: Product used for unknown indication
     Route: 048
     Dates: start: 20210115

REACTIONS (2)
  - Urticaria [Recovered/Resolved]
  - Respiratory distress [Recovered/Resolved]

NARRATIVE: CASE EVENT DATE: 20210219
